FAERS Safety Report 8608110-X (Version None)
Quarter: 2012Q3

REPORT INFORMATION
  Report Type: 
  Country: None (occurrence: None)
  Receive Date: 20120821
  Receipt Date: 20120813
  Transmission Date: 20120928
  Serious: Yes (Hospitalization, Other)
  Sender: FDA-Public Use
  Company Number: US-ASTELLAS-2012US007072

PATIENT
  Age: 76 Year
  Sex: Female
  Weight: 59 kg

DRUGS (6)
  1. CARBOPLATIN [Concomitant]
     Indication: NON-SMALL CELL LUNG CANCER
     Dosage: UNK
     Route: 042
     Dates: start: 20120501, end: 20120701
  2. IMODIUM [Concomitant]
     Indication: DIARRHOEA
     Dosage: UNK
     Route: 048
     Dates: start: 20120501
  3. ERLOTINIB HYDROCHLORIDE [Suspect]
     Indication: NON-SMALL CELL LUNG CANCER
     Dosage: 150 MG, UID/QD
     Route: 048
     Dates: start: 20120503
  4. MAGNESIUM [Concomitant]
     Indication: PRODUCT USED FOR UNKNOWN INDICATION
     Dosage: UNK
     Route: 048
     Dates: start: 20110501
  5. TAXOL [Concomitant]
     Indication: NON-SMALL CELL LUNG CANCER
     Dosage: UNK
     Route: 042
     Dates: start: 20120501, end: 20120701
  6. FIRST MOUTHWASH BXN [Concomitant]
     Indication: STOMATITIS
     Dosage: UNK
     Route: 048
     Dates: start: 20120701

REACTIONS (8)
  - FATIGUE [None]
  - GENITAL RASH [None]
  - VISION BLURRED [None]
  - BRAIN OPERATION [None]
  - BLOOD MAGNESIUM DECREASED [None]
  - DIARRHOEA [None]
  - RASH [None]
  - CEREBRAL HAEMORRHAGE [None]
